FAERS Safety Report 9129761 (Version 1)
Quarter: 2013Q1

REPORT INFORMATION
  Report Type: Report from Study
  Country: US (occurrence: US)
  Receive Date: 20130228
  Receipt Date: 20130228
  Transmission Date: 20140127
  Serious: Yes (Hospitalization)
  Sender: FDA-Public Use
  Company Number: US-JNJFOC-20130213923

PATIENT
  Age: 48 Year
  Sex: Male
  Weight: 116.5 kg

DRUGS (3)
  1. DOXORUBICIN HYDROCHLORIDE (DOXIL) [Suspect]
     Indication: MYCOSIS FUNGOIDES
     Dosage: CYCLE 2
     Route: 042
  2. DOXORUBICIN HYDROCHLORIDE (DOXIL) [Suspect]
     Indication: MYCOSIS FUNGOIDES
     Dosage: CYCLE 1
     Route: 042
     Dates: start: 20071109, end: 20071203
  3. TARGRETIN [Suspect]
     Indication: MYCOSIS FUNGOIDES
     Route: 065

REACTIONS (3)
  - Ulcer [Unknown]
  - Pain [Unknown]
  - Therapeutic response decreased [Unknown]
